FAERS Safety Report 11414493 (Version 1)
Quarter: 2015Q3

REPORT INFORMATION
  Report Type: Spontaneous
  Country: US (occurrence: None)
  Receive Date: 20150824
  Receipt Date: 20150824
  Transmission Date: 20151125
  Serious: Yes (Hospitalization)
  Sender: FDA-Public Use
  Company Number: None

PATIENT
  Age: 49 Year
  Sex: Female
  Weight: 40.37 kg

DRUGS (1)
  1. CISPLATIN. [Suspect]
     Active Substance: CISPLATIN
     Dosage: CYCLE 4 WEEKLY
     Dates: end: 20150812

REACTIONS (7)
  - Blood bilirubin abnormal [None]
  - Hypomagnesaemia [None]
  - Dehydration [None]
  - Anaemia [None]
  - Vomiting [None]
  - Hypokalaemia [None]
  - Nausea [None]

NARRATIVE: CASE EVENT DATE: 20150819
